FAERS Safety Report 6102064-6 (Version None)
Quarter: 2009Q1

REPORT INFORMATION
  Report Type: 
  Country: None (occurrence: None)
  Receive Date: 20090304
  Receipt Date: 20090227
  Transmission Date: 20090719
  Serious: Yes (Other)
  Sender: FDA-Public Use
  Company Number: FR-RB-009356-08

PATIENT
  Age: 35 Year
  Sex: Male

DRUGS (2)
  1. SUBUTEX [Suspect]
     Indication: DRUG USE FOR UNKNOWN INDICATION
     Route: 042
     Dates: start: 20080204
  2. SUBUTEX [Suspect]
     Dosage: DOSING INFORMATION UNKNOWN.
     Route: 065

REACTIONS (5)
  - ABSCESS [None]
  - INCORRECT ROUTE OF DRUG ADMINISTRATION [None]
  - OEDEMA [None]
  - SKIN NECROSIS [None]
  - SUBSTANCE ABUSE [None]
